FAERS Safety Report 16877520 (Version 3)
Quarter: 2019Q4

REPORT INFORMATION
  Report Type: Spontaneous
  Country: US (occurrence: US)
  Receive Date: 20191002
  Receipt Date: 20191025
  Transmission Date: 20200122
  Serious: No
  Sender: FDA-Public Use
  Company Number: US-PFIZER INC-2019424699

PATIENT
  Age: 53 Year
  Sex: Female
  Weight: 97.7 kg

DRUGS (2)
  1. LYRICA [Suspect]
     Active Substance: PREGABALIN
     Indication: MUSCLE SPASMS
     Dosage: 50 MG, 3X/DAY
     Route: 048
     Dates: start: 2019
  2. LYRICA [Suspect]
     Active Substance: PREGABALIN
     Dosage: 50 MG, 1X/DAY (ONCE AT BEDTIME)

REACTIONS (4)
  - Off label use [Unknown]
  - Somnolence [Unknown]
  - Intentional product use issue [Unknown]
  - Product use in unapproved indication [Unknown]

NARRATIVE: CASE EVENT DATE: 2019
